FAERS Safety Report 5392502-9 (Version None)
Quarter: 2007Q3

REPORT INFORMATION
  Report Type: 
  Country: None (occurrence: None)
  Receive Date: 20070720
  Receipt Date: 20070711
  Transmission Date: 20080115
  Serious: Yes (Death)
  Sender: FDA-Public Use
  Company Number: SK-ELI_LILLY_AND_COMPANY-SK200706003677

PATIENT
  Age: 51 Year
  Sex: Male
  Weight: 60 kg

DRUGS (9)
  1. HUMALOG [Suspect]
     Indication: TYPE 1 DIABETES MELLITUS
     Dosage: UNK IU, DAILY (1/D)
     Route: 058
     Dates: start: 20060101
  2. HUMALOG [Suspect]
     Dosage: 24 IU, DAILY (1/D)
     Route: 058
     Dates: start: 20061201
  3. HUMALOG [Suspect]
     Dosage: 12 IU, DAILY (1/D)
     Route: 058
     Dates: start: 20070101
  4. HUMULIN N [Suspect]
     Indication: TYPE 1 DIABETES MELLITUS
     Dosage: UNK IU, DAILY (1/D)
     Route: 058
     Dates: start: 20060101
  5. HUMULIN N [Suspect]
     Dosage: 12 IU, DAILY (1/D)
     Route: 058
     Dates: start: 20061201
  6. HUMULIN N [Suspect]
     Dosage: 6 IU, DAILY (1/D)
     Route: 058
     Dates: start: 20070101
  7. TRAMADOL HCL [Concomitant]
     Dosage: 300 MG, DAILY (1/D)
     Route: 048
  8. FUROSEMIDE [Concomitant]
     Dosage: 40 MG, DAILY (1/D)
     Route: 048
  9. ETHAMSYLATE [Concomitant]
     Dosage: 750 MG, DAILY (1/D)
     Route: 048

REACTIONS (4)
  - COMA HEPATIC [None]
  - GASTROINTESTINAL HAEMORRHAGE [None]
  - HYPERGLYCAEMIA [None]
  - MALIGNANT NEOPLASM PROGRESSION [None]
